FAERS Safety Report 14394325 (Version 1)
Quarter: 2018Q1

REPORT INFORMATION
  Report Type: Spontaneous
  Country: US (occurrence: US)
  Receive Date: 20180116
  Receipt Date: 20180116
  Transmission Date: 20180509
  Serious: Yes (Other)
  Sender: FDA-Public Use
  Company Number: US-REGENERON PHARMACEUTICALS, INC.-2017-24943

PATIENT

DRUGS (2)
  1. EYLEA [Suspect]
     Active Substance: AFLIBERCEPT
     Indication: CHORIORETINOPATHY
     Dosage: RIGHT EYE, LAST DOSE PRIOR TO EVENT
     Route: 031
     Dates: start: 20171006, end: 20171006
  2. EYLEA [Suspect]
     Active Substance: AFLIBERCEPT
     Indication: NEOVASCULAR AGE-RELATED MACULAR DEGENERATION
     Dosage: LEFT EYE, LAST DOSE PRIOR TO EVENT
     Route: 031
     Dates: start: 20171006, end: 20171006

REACTIONS (7)
  - Vitritis [Recovering/Resolving]
  - Visual acuity reduced [Recovered/Resolved]
  - Vision blurred [Recovering/Resolving]
  - Vitreous floaters [Unknown]
  - Vitreous opacities [Unknown]
  - Anterior chamber cell [Unknown]
  - Eye inflammation [Recovering/Resolving]

NARRATIVE: CASE EVENT DATE: 20171007
